FAERS Safety Report 8229441-1 (Version None)
Quarter: 2012Q1

REPORT INFORMATION
  Report Type: 
  Country: None (occurrence: None)
  Receive Date: 20120322
  Receipt Date: 20120313
  Transmission Date: 20120608
  Serious: Yes (Other)
  Sender: FDA-Public Use
  Company Number: CA-ROCHE-GNE302698

PATIENT
  Sex: Female

DRUGS (1)
  1. XOLAIR [Suspect]
     Indication: ASTHMA
     Dosage: 225 MG, BID
     Route: 058
     Dates: start: 20060130

REACTIONS (3)
  - ROAD TRAFFIC ACCIDENT [None]
  - MUSCULOSKELETAL PAIN [None]
  - NECK PAIN [None]
